FAERS Safety Report 4389521-8 (Version None)
Quarter: 2004Q2

REPORT INFORMATION
  Report Type: 
  Country: None (occurrence: None)
  Receive Date: 20040628
  Receipt Date: 20040316
  Transmission Date: 20050107
  Serious: Yes (Hospitalization)
  Sender: FDA-Public Use
  Company Number: US-JNJFOC-20040604426

PATIENT
  Age: 80 Year
  Sex: Female

DRUGS (11)
  1. REMINYL [Suspect]
     Indication: DEMENTIA ALZHEIMER'S TYPE
     Dosage: SEE IMAGE
     Route: 048
     Dates: start: 20020616, end: 20040310
  2. REMINYL [Suspect]
     Indication: DEMENTIA ALZHEIMER'S TYPE
     Dosage: SEE IMAGE
     Route: 048
     Dates: start: 20040811
  3. SEROQUEL [Suspect]
     Dosage: ORAL
     Route: 048
  4. CELEXA [Concomitant]
  5. ACETYLSALICYLIC ACID SRT [Concomitant]
  6. LIPITOR [Concomitant]
  7. ISOSORBIDE (ISOSORBIDE) [Concomitant]
  8. LECITHIN (LECITHIN) [Concomitant]
  9. GLUCOSAMINE (GLUCOSAMINE) [Concomitant]
  10. COLACE (DOCUSATE SODIUM) [Concomitant]
  11. ACETYLSALICYLIC ACID SRT [Concomitant]

REACTIONS (11)
  - BLOOD PRESSURE ORTHOSTATIC DECREASED [None]
  - CEREBROVASCULAR DISORDER [None]
  - CONFUSIONAL STATE [None]
  - DELIRIUM [None]
  - DIZZINESS [None]
  - GAIT DISTURBANCE [None]
  - HALLUCINATION, VISUAL [None]
  - MUSCLE TWITCHING [None]
  - NAUSEA [None]
  - NERVOUS SYSTEM DISORDER [None]
  - VOMITING [None]
